FAERS Safety Report 12612287 (Version 1)
Quarter: 2016Q3

REPORT INFORMATION
  Report Type: Spontaneous
  Country: BR (occurrence: BR)
  Receive Date: 20160801
  Receipt Date: 20160801
  Transmission Date: 20161109
  Serious: Yes (Other)
  Sender: FDA-Public Use
  Company Number: BR-PFIZER INC-2016358224

PATIENT
  Age: 68 Year
  Sex: Male

DRUGS (11)
  1. PLAVIX [Concomitant]
     Active Substance: CLOPIDOGREL BISULFATE
     Indication: ANTICOAGULANT THERAPY
     Dosage: UNK
  2. AAS PREVENT [Concomitant]
     Indication: ANTICOAGULANT THERAPY
     Dosage: 80 MG, UNK
     Route: 048
  3. AAS PREVENT [Concomitant]
     Dosage: 20 MG, UNK
  4. GLIFAGE [Concomitant]
     Active Substance: METFORMIN HYDROCHLORIDE
     Indication: DIABETES MELLITUS
     Dosage: 2 TABLETS A DAY
     Route: 048
     Dates: start: 1996
  5. AMARYL [Concomitant]
     Active Substance: GLIMEPIRIDE
     Indication: DIABETES MELLITUS
     Dosage: 1 TABLET A DAY
     Route: 048
     Dates: start: 1996
  6. AAS PREVENT [Concomitant]
     Dosage: 10 MG, UNK
  7. AAS PREVENT [Concomitant]
     Dosage: 40 MG, UNK
  8. LIPITOR [Suspect]
     Active Substance: ATORVASTATIN CALCIUM
     Dosage: 20 MG, UNK
  9. LIPITOR [Suspect]
     Active Substance: ATORVASTATIN CALCIUM
     Dosage: 10 MG, UNK
  10. LIPITOR [Suspect]
     Active Substance: ATORVASTATIN CALCIUM
     Dosage: 80 MG, UNK
  11. LIPITOR [Suspect]
     Active Substance: ATORVASTATIN CALCIUM
     Dosage: 40 MG, UNK

REACTIONS (2)
  - Arterial occlusive disease [Unknown]
  - Pancreatic enzymes increased [Unknown]

NARRATIVE: CASE EVENT DATE: 201501
